FAERS Safety Report 7073222-1 (Version None)
Quarter: 2010Q4

REPORT INFORMATION
  Report Type: 
  Country: None (occurrence: None)
  Receive Date: 20101029
  Receipt Date: 20100629
  Transmission Date: 20110411
  Serious: No
  Sender: FDA-Public Use
  Company Number: A0859153A

PATIENT
  Age: 16 Year
  Sex: Male

DRUGS (3)
  1. ADVAIR DISKUS 100/50 [Suspect]
     Indication: ASTHMA
     Dosage: 1PUFF TWICE PER DAY
     Route: 055
     Dates: start: 20100427, end: 20100507
  2. ALLEGRA [Concomitant]
  3. CONCERTA [Concomitant]

REACTIONS (4)
  - DIARRHOEA [None]
  - NAUSEA [None]
  - THROAT IRRITATION [None]
  - VOMITING [None]
